FAERS Safety Report 13076311 (Version 1)
Quarter: 2016Q4

REPORT INFORMATION
  Report Type: Spontaneous
  Country: US (occurrence: US)
  Receive Date: 20161230
  Receipt Date: 20161230
  Transmission Date: 20170207
  Serious: Yes (Life-Threatening, Hospitalization)
  Sender: FDA-Public Use
  Company Number: None

PATIENT
  Age: 86 Year
  Sex: Male
  Weight: 68.5 kg

DRUGS (1)
  1. WARFARIN [Suspect]
     Active Substance: WARFARIN
     Indication: ATRIAL FIBRILLATION
     Dates: start: 20020417

REACTIONS (7)
  - Haematoma [None]
  - Accidental overdose [None]
  - Dyspnoea [None]
  - Haemorrhage [None]
  - International normalised ratio increased [None]
  - Dysphagia [None]
  - Pharyngeal oedema [None]

NARRATIVE: CASE EVENT DATE: 20160808
